FAERS Safety Report 24051280 (Version 1)
Quarter: 2024Q3

REPORT INFORMATION
  Report Type: Spontaneous
  Country: NL (occurrence: NL)
  Receive Date: 20240704
  Receipt Date: 20240704
  Transmission Date: 20241016
  Serious: Yes (Death, Other)
  Sender: AMGEN
  Company Number: NL-AMGEN-NLDSP2024127933

PATIENT

DRUGS (11)
  1. BEVACIZUMAB [Suspect]
     Active Substance: BEVACIZUMAB
     Indication: Colorectal cancer metastatic
     Dosage: 7.5 MILLIGRAM/KILOGRAM, Q3WK
     Route: 065
  2. BEVACIZUMAB [Suspect]
     Active Substance: BEVACIZUMAB
     Dosage: 5 MILLIGRAM/KILOGRAM, Q3WK
     Route: 065
  3. OXALIPLATIN [Concomitant]
     Active Substance: OXALIPLATIN
     Indication: Colorectal cancer metastatic
     Dosage: 130 MILLIGRAM/M^2
     Route: 042
  4. OXALIPLATIN [Concomitant]
     Active Substance: OXALIPLATIN
     Dosage: 85 MILLIGRAM/M^2
     Route: 042
  5. OXALIPLATIN [Concomitant]
     Active Substance: OXALIPLATIN
     Dosage: 92 MILLIGRAM/M^2
     Route: 042
  6. CAPECITABINE [Concomitant]
     Active Substance: CAPECITABINE
     Indication: Colorectal cancer metastatic
     Dosage: 1000 MILLIGRAM/SQ. METER, BID
     Route: 048
  7. LEUCOVORIN [Concomitant]
     Active Substance: LEUCOVORIN\LEUCOVORIN CALCIUM
     Indication: Colorectal cancer metastatic
     Dosage: 400 MILLIGRAM/SQ. METER
     Route: 065
  8. LEUCOVORIN [Concomitant]
     Active Substance: LEUCOVORIN\LEUCOVORIN CALCIUM
     Dosage: 20 MILLIGRAM/SQ. METER
     Route: 042
  9. FLUOROURACIL [Concomitant]
     Active Substance: FLUOROURACIL
     Indication: Colorectal cancer metastatic
     Dosage: 400 MILLIGRAM/SQ. METER
     Route: 065
  10. FLUOROURACIL [Concomitant]
     Active Substance: FLUOROURACIL
     Dosage: 2400 MILLIGRAM/SQ. METER
     Route: 065
  11. IRINOTECAN [Concomitant]
     Active Substance: IRINOTECAN
     Indication: Colorectal cancer metastatic
     Dosage: 180 MILLIGRAM/SQ. METER
     Route: 042

REACTIONS (18)
  - Colorectal cancer metastatic [Unknown]
  - Death [Fatal]
  - Gamma-glutamyltransferase increased [Unknown]
  - Pseudomyxoma peritonei [Unknown]
  - Ascites [Unknown]
  - Enteritis [Unknown]
  - Febrile neutropenia [Unknown]
  - Diarrhoea [Unknown]
  - Hyperglycaemia [Unknown]
  - Abdominal pain [Unknown]
  - Anaemia [Unknown]
  - Infusion related reaction [Unknown]
  - Marrow hyperplasia [Unknown]
  - Nausea [Unknown]
  - Peripheral sensory neuropathy [Unknown]
  - Fatigue [Unknown]
  - Impaired healing [Unknown]
  - Mucosal inflammation [Unknown]
